FAERS Safety Report 19627323 (Version 3)
Quarter: 2021Q3

REPORT INFORMATION
  Report Type: Spontaneous
  Country: US (occurrence: US)
  Receive Date: 20210729
  Receipt Date: 20210910
  Transmission Date: 20211014
  Serious: No
  Sender: FDA-Public Use
  Company Number: US-BRISTOL-MYERS SQUIBB COMPANY-BMS-2021-074513

PATIENT
  Age: 50 Year
  Sex: Male

DRUGS (3)
  1. SPRYCEL [Suspect]
     Active Substance: DASATINIB
     Indication: CHRONIC MYELOID LEUKAEMIA
     Dosage: 50 MILLIGRAM, 2 TABS (1), QD
     Route: 048
  2. SPRYCEL [Suspect]
     Active Substance: DASATINIB
     Dosage: 100 MILLIGRAM, QD
     Route: 048
     Dates: start: 20210813
  3. SPRYCEL [Suspect]
     Active Substance: DASATINIB
     Dosage: 1 TAB
     Route: 048

REACTIONS (3)
  - Product packaging quantity issue [Unknown]
  - Contusion [Unknown]
  - Product supply issue [Unknown]
